FAERS Safety Report 12767079 (Version 2)
Quarter: 2017Q1

REPORT INFORMATION
  Report Type: Spontaneous
  Country: US (occurrence: US)
  Receive Date: 20160921
  Receipt Date: 20170303
  Transmission Date: 20170428
  Serious: No
  Sender: FDA-Public Use
  Company Number: US-ACTELION-A-US2016-142547

PATIENT
  Age: 71 Year
  Sex: Female

DRUGS (3)
  1. TRIAMCINOLONE ACETONIDE. [Concomitant]
     Active Substance: TRIAMCINOLONE ACETONIDE
  2. VALCHLOR [Suspect]
     Active Substance: MECHLORETHAMINE
     Indication: MYCOSIS FUNGOIDES
     Dosage: UNK, QD
     Route: 061
     Dates: start: 20151222, end: 20160915
  3. DERMASORB AF [Concomitant]

REACTIONS (4)
  - Application site dryness [Unknown]
  - Application site fissure [Unknown]
  - Application site exfoliation [Unknown]
  - Application site haemorrhage [Unknown]
